FAERS Safety Report 19167173 (Version 1)
Quarter: 2021Q2

REPORT INFORMATION
  Report Type: Spontaneous
  Country: GB (occurrence: GB)
  Receive Date: 20210422
  Receipt Date: 20210422
  Transmission Date: 20210717
  Serious: Yes (Hospitalization)
  Sender: FDA-Public Use
  Company Number: GB-AUROBINDO-AUR-APL-2021-016092

PATIENT
  Age: 41 Year
  Sex: Male
  Weight: 64 kg

DRUGS (1)
  1. TRANEXAMIC ACID. [Suspect]
     Active Substance: TRANEXAMIC ACID
     Indication: ANAL HAEMORRHAGE
     Dosage: 1 GRAM, 3 TIMES A DAY
     Route: 042
     Dates: start: 20210412, end: 20210412

REACTIONS (1)
  - Dyspnoea [Recovering/Resolving]

NARRATIVE: CASE EVENT DATE: 20210412
